FAERS Safety Report 8622562 (Version 2)
Quarter: 2013Q3

REPORT INFORMATION
  Report Type: Spontaneous
  Country: PT (occurrence: PT)
  Receive Date: 20120619
  Receipt Date: 20130719
  Transmission Date: 20140515
  Serious: Yes (Other)
  Sender: FDA-Public Use
  Company Number: PT-GLAXOSMITHKLINE-B0807982A

PATIENT
  Age: 11 Year
  Sex: Male

DRUGS (1)
  1. PAXETIL [Suspect]
     Indication: PRODUCT USED FOR UNKNOWN INDICATION
     Dosage: 20MG PER DAY
     Route: 048
     Dates: end: 201011

REACTIONS (9)
  - Aggression [Recovered/Resolved]
  - Off label use [Recovered/Resolved]
  - Restlessness [Recovered/Resolved]
  - Euphoric mood [Recovered/Resolved]
  - Disturbance in attention [Recovered/Resolved]
  - Tremor [Recovered/Resolved]
  - Panic reaction [Recovered/Resolved]
  - Anger [Recovered/Resolved]
  - Anxiety [Recovered/Resolved]
